FAERS Safety Report 4453597-X (Version None)
Quarter: 2004Q3

REPORT INFORMATION
  Report Type: 
  Country: None (occurrence: None)
  Receive Date: 20040920
  Receipt Date: 20040819
  Transmission Date: 20050211
  Serious: Yes (Other)
  Sender: FDA-Public Use
  Company Number: PHHO2004CA11767

PATIENT
  Sex: Female

DRUGS (2)
  1. CLOZARIL [Suspect]
     Indication: SCHIZOPHRENIA
     Dosage: EVENING DOSE INCREASED
     Route: 048
     Dates: end: 20040719
  2. CLOZARIL [Suspect]
     Dosage: NOT REPORTED
     Route: 048

REACTIONS (2)
  - FEELING ABNORMAL [None]
  - PANIC REACTION [None]
